FAERS Safety Report 6237066-2 (Version None)
Quarter: 2009Q2

REPORT INFORMATION
  Report Type: 
  Country: None (occurrence: None)
  Receive Date: 20090619
  Receipt Date: 20090518
  Transmission Date: 20091009
  Serious: No
  Sender: FDA-Public Use
  Company Number: US-ASTRAZENECA-2009UW12820

PATIENT
  Age: 50 Year
  Sex: Female

DRUGS (1)
  1. SYMBICORT [Suspect]
     Route: 055

REACTIONS (4)
  - DYSGEUSIA [None]
  - GLOSSODYNIA [None]
  - HYPOAESTHESIA ORAL [None]
  - STOMATITIS [None]
